FAERS Safety Report 10019902 (Version 2)
Quarter: 2014Q2

REPORT INFORMATION
  Report Type: Spontaneous
  Country: US (occurrence: US)
  Receive Date: 20140318
  Receipt Date: 20140618
  Transmission Date: 20141212
  Serious: No
  Sender: FDA-Public Use
  Company Number: US-GALDERMA-US14000562

PATIENT
  Age: 45 Year
  Sex: Female

DRUGS (5)
  1. MIRVASO (BRIMONIDINE) TOPICAL GEL, 0.33% [Suspect]
     Indication: ROSACEA
     Dosage: 0.33%
     Route: 061
     Dates: start: 20131108, end: 20140207
  2. MARIO BADESCU KERATOPLAST CREAM SOAP [Concomitant]
     Indication: THERAPEUTIC SKIN CARE TOPICAL
     Route: 061
     Dates: start: 201307
  3. MARIO BADESCU HYALURONIC EYE CREAM [Concomitant]
     Indication: DRY SKIN PROPHYLAXIS
     Route: 061
     Dates: start: 201311
  4. BAMBOO LEAF ANTI-REDNESS CREAM [Concomitant]
     Indication: DRY SKIN PROPHYLAXIS
     Dates: start: 201305
  5. IPRATROPIUM BROMIDE [Concomitant]
     Indication: SINUS CONGESTION
     Dates: start: 2008

REACTIONS (5)
  - Flushing [Recovered/Resolved]
  - Skin burning sensation [Recovered/Resolved]
  - Erythema [Recovered/Resolved]
  - Off label use [Recovered/Resolved]
  - Rebound effect [Recovered/Resolved]
